FAERS Safety Report 15635059 (Version 1)
Quarter: 2018Q4

REPORT INFORMATION
  Report Type: Spontaneous
  Country: FR (occurrence: FR)
  Receive Date: 20181119
  Receipt Date: 20181119
  Transmission Date: 20190205
  Serious: Yes (Other)
  Sender: FDA-Public Use
  Company Number: FR-ASTRAZENECA-2018SF50706

PATIENT
  Age: 52 Year
  Sex: Male
  Weight: 90.5 kg

DRUGS (2)
  1. PIPERACILLIN. [Suspect]
     Active Substance: PIPERACILLIN SODIUM
     Indication: INFECTION
     Route: 041
     Dates: start: 20180411, end: 20180416
  2. ESOMEPRAZOLE. [Suspect]
     Active Substance: ESOMEPRAZOLE MAGNESIUM
     Indication: PRODUCT USED FOR UNKNOWN INDICATION
     Route: 048
     Dates: start: 20180405

REACTIONS (3)
  - Toxic skin eruption [Unknown]
  - Eosinophilia [Recovered/Resolved]
  - Hepatocellular injury [Recovered/Resolved]

NARRATIVE: CASE EVENT DATE: 201804
